FAERS Safety Report 10396982 (Version 1)
Quarter: 2014Q3

REPORT INFORMATION
  Report Type: Spontaneous
  Country: US (occurrence: None)
  Receive Date: 20140819
  Receipt Date: 20140819
  Transmission Date: 20150326
  Serious: No
  Sender: FDA-Public Use
  Company Number: None

PATIENT
  Age: 49 Year
  Sex: Female
  Weight: 75 kg

DRUGS (1)
  1. BLEPHAMIDE [Suspect]
     Active Substance: PREDNISOLONE ACETATE\SULFACETAMIDE SODIUM
     Indication: EYE INFECTION
     Dosage: 1 DROP 4 TIMES DAILY, FOUR TIMES DAILY, INTO THE EYE
     Route: 047
     Dates: start: 20140808, end: 20140812

REACTIONS (2)
  - Eyelid oedema [None]
  - Urticaria [None]

NARRATIVE: CASE EVENT DATE: 20140808
